FAERS Safety Report 16020729 (Version 2)
Quarter: 2019Q1

REPORT INFORMATION
  Report Type: Report from Study
  Country: US (occurrence: US)
  Receive Date: 20190301
  Receipt Date: 20190320
  Transmission Date: 20190418
  Serious: Yes (Hospitalization)
  Sender: FDA-Public Use
  Company Number: US-ALEXION PHARMACEUTICALS INC.-A201902984

PATIENT
  Age: 11 Year
  Sex: Female
  Weight: 19 kg

DRUGS (46)
  1. MELATONIN [Concomitant]
     Active Substance: MELATONIN
     Indication: SLEEP DISORDER
     Dosage: 3 MG, QHS G-TUBE
     Route: 050
     Dates: start: 20181001
  2. FOLVITE [Concomitant]
     Active Substance: FOLIC ACID
     Indication: PRODUCT USED FOR UNKNOWN INDICATION
     Dosage: 1 MG, QD (MORNING) G-TUBE
     Route: 050
     Dates: start: 20180904
  3. IBUPROFEN. [Concomitant]
     Active Substance: IBUPROFEN
     Indication: PRODUCT USED FOR UNKNOWN INDICATION
     Dosage: 100 MG, Q6H PRN G-TUBE
     Route: 050
  4. NYSTOP [Concomitant]
     Active Substance: NYSTATIN
     Indication: TRACHEOSTOMY
     Dosage: 1 G, QD
     Route: 061
     Dates: start: 20190211
  5. LORATADINE. [Concomitant]
     Active Substance: LORATADINE
     Indication: PRODUCT USED FOR UNKNOWN INDICATION
     Dosage: 5 MG, QD (MORNING) G-TUBE
     Route: 050
  6. REGLAN [Concomitant]
     Active Substance: METOCLOPRAMIDE HYDROCHLORIDE
     Indication: PRODUCT USED FOR UNKNOWN INDICATION
     Dosage: 2 MG, QID
     Route: 048
     Dates: start: 20170505
  7. REGLAN [Concomitant]
     Active Substance: METOCLOPRAMIDE HYDROCHLORIDE
     Dosage: 2 MG, QID G-TUBE
     Route: 050
     Dates: start: 20181030
  8. CUVPOSA                            /00196202/ [Concomitant]
     Dosage: 1 MG, Q8H PRN G-TUBE
     Route: 050
     Dates: start: 20181005
  9. PEDIALYTE                          /02069401/ [Concomitant]
     Indication: SUPPLEMENTATION THERAPY
     Dosage: 50 ML, 1 HOUR FOR 5 TIMES A DAY
     Route: 065
  10. HYDRODIURIL [Concomitant]
     Active Substance: HYDROCHLOROTHIAZIDE
     Dosage: 5 MG/ML (TAKE 2.5 ML), QD
     Route: 048
     Dates: start: 20190215
  11. STRENSIQ [Suspect]
     Active Substance: ASFOTASE ALFA
     Dosage: 28 MG, TIW
     Route: 058
     Dates: start: 201605
  12. HUMIRA [Concomitant]
     Active Substance: ADALIMUMAB
     Indication: COLITIS ULCERATIVE
     Dosage: 20 MG, Q2W
     Route: 058
     Dates: start: 20170822
  13. REGLAN [Concomitant]
     Active Substance: METOCLOPRAMIDE HYDROCHLORIDE
     Dosage: 10 MG, QID G-TUBE
     Route: 050
  14. SULFASALAZINE. [Concomitant]
     Active Substance: SULFASALAZINE
     Indication: PRODUCT USED FOR UNKNOWN INDICATION
     Dosage: 250 MG, TID G-TUBE
     Route: 050
  15. SODIUM CHLORIDE. [Concomitant]
     Active Substance: SODIUM CHLORIDE
     Dosage: 4 MEQ, BID DILUTE PRIOR TO ADMINISTRATION
     Route: 048
     Dates: start: 20190215
  16. ATROVENT [Concomitant]
     Active Substance: IPRATROPIUM BROMIDE
     Indication: PRODUCT USED FOR UNKNOWN INDICATION
     Dosage: 2 PUFF, QID
     Route: 055
  17. HYDRODIURIL [Concomitant]
     Active Substance: HYDROCHLOROTHIAZIDE
     Indication: PRODUCT USED FOR UNKNOWN INDICATION
     Dosage: 2 ML, QD
     Route: 065
     Dates: start: 20181127
  18. SIMETHICONE (DIMETHICONE) [Concomitant]
     Active Substance: DIMETHICONE
     Indication: FLATULENCE
     Dosage: 20 MG, PRN G-TUBE
     Route: 050
  19. NEOCATE [Concomitant]
     Active Substance: DIETARY SUPPLEMENT
     Indication: SUPPLEMENTATION THERAPY
     Dosage: 150 ML, 1 HOUR FOR 5 TIMES A DAY
     Route: 065
  20. REGLAN [Concomitant]
     Active Substance: METOCLOPRAMIDE HYDROCHLORIDE
     Dosage: 2 MG, QID G-TUBE
     Route: 050
     Dates: start: 20181001
  21. ACETAMINOPHEN. [Concomitant]
     Active Substance: ACETAMINOPHEN
     Indication: PRODUCT USED FOR UNKNOWN INDICATION
     Dosage: 160 MG, Q4H PRN G-TUBE
     Route: 050
  22. CETAPHIL                           /02314901/ [Concomitant]
     Active Substance: COSMETICS
     Indication: PRODUCT USED FOR UNKNOWN INDICATION
     Dosage: UNK UNK, QD
     Route: 061
  23. POLY-VI-SOL                        /00200301/ [Concomitant]
     Indication: PRODUCT USED FOR UNKNOWN INDICATION
     Dosage: 1 ML, QD (MORNING) G-TUBE
     Route: 050
     Dates: start: 20181227
  24. ATARAX [Concomitant]
     Active Substance: HYDROXYZINE HYDROCHLORIDE
     Indication: RHINORRHOEA
     Dosage: 15 MG, QHS PRN G-TUBE
     Route: 050
  25. ZYRTEC [Concomitant]
     Active Substance: CETIRIZINE HYDROCHLORIDE
     Indication: PRODUCT USED FOR UNKNOWN INDICATION
     Dosage: 5 MG, BID
     Route: 048
  26. FLAGYL [Concomitant]
     Active Substance: METRONIDAZOLE\METRONIDAZOLE HYDROCHLORIDE
     Indication: HAEMATOCHEZIA
     Dosage: 93 MG, TID
     Route: 050
     Dates: start: 20170603
  27. DIASTAT ACUDIAL [Concomitant]
     Active Substance: DIAZEPAM
     Dosage: 10 MG, PRN
     Route: 054
     Dates: start: 20181126
  28. MELATONIN [Concomitant]
     Active Substance: MELATONIN
     Dosage: 3 MG, QHS G-TUBE
     Route: 050
  29. SODIUM CHLORIDE. [Concomitant]
     Active Substance: SODIUM CHLORIDE
     Dosage: 4 MEQ, BID G-TUBE
     Route: 050
  30. SIMETHICONE (DIMETHICONE) [Concomitant]
     Active Substance: DIMETHICONE
     Indication: ABDOMINAL PAIN UPPER
  31. MIRALAX [Concomitant]
     Active Substance: POLYETHYLENE GLYCOL 3350
     Indication: PRODUCT USED FOR UNKNOWN INDICATION
     Dosage: 0.5 SCOOP, QD G-TUBE
     Route: 050
  32. ATROVENT [Concomitant]
     Active Substance: IPRATROPIUM BROMIDE
     Dosage: 2 PUFF, Q8H PRN
     Route: 055
     Dates: start: 20190128
  33. PROTONIX [Concomitant]
     Active Substance: PANTOPRAZOLE SODIUM
     Indication: HYPERCHLORHYDRIA
     Dosage: UNK
     Route: 065
     Dates: start: 20170425
  34. PRILOSEC [Concomitant]
     Active Substance: OMEPRAZOLE MAGNESIUM
     Dosage: 20 MG, QD
     Route: 048
     Dates: start: 20190216
  35. DIASTAT ACUDIAL [Concomitant]
     Active Substance: DIAZEPAM
     Indication: SEIZURE
     Dosage: 5 MG, PRN
     Route: 054
     Dates: start: 20171215
  36. MELATONIN [Concomitant]
     Active Substance: MELATONIN
     Dosage: 5 MG, QHS G-TUBE
     Route: 050
  37. SODIUM CHLORIDE. [Concomitant]
     Active Substance: SODIUM CHLORIDE
     Indication: PRODUCT USED FOR UNKNOWN INDICATION
     Dosage: 3 VIALS VIA NEBULIZER (INHALATION)
     Route: 050
     Dates: start: 20180829
  38. KEPPRA [Concomitant]
     Active Substance: LEVETIRACETAM
     Indication: SEIZURE
     Dosage: 300 MG, BID G-TUBE
     Route: 050
     Dates: start: 20180829, end: 20190220
  39. STRENSIQ [Suspect]
     Active Substance: ASFOTASE ALFA
     Indication: HYPOPHOSPHATASIA
     Dosage: 2 MG/KG, TIW
     Route: 058
     Dates: start: 20160517
  40. PRILOSEC [Concomitant]
     Active Substance: OMEPRAZOLE MAGNESIUM
     Indication: GASTROOESOPHAGEAL REFLUX DISEASE
     Dosage: 13 MG, QD
     Route: 048
     Dates: start: 20170505
  41. METHYLPREDNISOLONE SODIUM SUCCINATE. [Concomitant]
     Active Substance: METHYLPREDNISOLONE SODIUM SUCCINATE
     Indication: HAEMATOCHEZIA
     Dosage: 15 MG, QD
     Route: 042
     Dates: start: 20170605
  42. HUMIRA [Concomitant]
     Active Substance: ADALIMUMAB
     Dosage: UNK,QW
     Route: 065
  43. CUVPOSA                            /00196202/ [Concomitant]
     Indication: SECRETION DISCHARGE
     Dosage: 1 MG, Q8H PRN G-TUBE
     Route: 050
     Dates: start: 20180724
  44. EUCERIN                            /01699901/ [Concomitant]
     Indication: PRODUCT USED FOR UNKNOWN INDICATION
     Dosage: UNK UNK, PRN CREAM
     Route: 061
  45. BACTROBAN [Concomitant]
     Active Substance: MUPIROCIN\MUPIROCIN CALCIUM
     Indication: DRY SKIN
     Dosage: 1 APPLICATION, PRN
     Route: 061
  46. GLYCOPYRROLATE                     /00196202/ [Concomitant]
     Active Substance: GLYCOPYRROLATE
     Indication: PRODUCT USED FOR UNKNOWN INDICATION
     Dosage: 0.5-1.0  MG, QID G-TUBE
     Route: 050

REACTIONS (1)
  - Colitis ulcerative [Recovered/Resolved]

NARRATIVE: CASE EVENT DATE: 20190211
